FAERS Safety Report 4412507-1 (Version None)
Quarter: 2004Q3

REPORT INFORMATION
  Report Type: 
  Country: None (occurrence: None)
  Receive Date: 20040730
  Receipt Date: 20040527
  Transmission Date: 20050211
  Serious: Yes (Other)
  Sender: FDA-Public Use
  Company Number: PHEH2004US06020

PATIENT
  Age: 73 Year
  Sex: Female
  Weight: 43 kg

DRUGS (8)
  1. MIACALCIN [Suspect]
     Dates: start: 20040527, end: 20040527
  2. PULMICORT [Concomitant]
     Dosage: 2 PUFFS BID
     Dates: start: 20010315
  3. MAXAIR [Concomitant]
     Dosage: 1-2 PUFFS PRN
     Dates: start: 19960301
  4. NASACORT [Concomitant]
     Dosage: BIDPRN
     Dates: start: 20020201
  5. ASTELIN [Concomitant]
     Dosage: 2 SPRAYS BID PRN
     Dates: start: 20010501
  6. VIOXX [Concomitant]
  7. CALCIUM [Concomitant]
  8. GLUCOSAMINE [Concomitant]

REACTIONS (11)
  - ABDOMINAL DISCOMFORT [None]
  - BLOOD PRESSURE INCREASED [None]
  - CHILLS [None]
  - DIZZINESS [None]
  - FATIGUE [None]
  - HYPERSENSITIVITY [None]
  - HYPERTENSION [None]
  - NAUSEA [None]
  - PALPITATIONS [None]
  - TREMOR [None]
  - VOMITING [None]
